FAERS Safety Report 6091591-6 (Version None)
Quarter: 2009Q1

REPORT INFORMATION
  Report Type: 
  Country: None (occurrence: None)
  Receive Date: 20090225
  Receipt Date: 20080204
  Transmission Date: 20090719
  Serious: No
  Sender: FDA-Public Use
  Company Number: A0707178A

PATIENT
  Sex: Female

DRUGS (3)
  1. VALTREX [Suspect]
     Indication: GENITAL HERPES
     Dosage: 500MG AS REQUIRED
     Dates: start: 20060101
  2. BIRTH CONTROL PILL [Concomitant]
  3. VITAMIN TAB [Concomitant]

REACTIONS (3)
  - DRUG EXPOSURE DURING PREGNANCY [None]
  - DRUG EXPOSURE VIA BREAST MILK [None]
  - ECZEMA [None]
